FAERS Safety Report 21382427 (Version 1)
Quarter: 2022Q3

REPORT INFORMATION
  Report Type: Other
  Country: IQ (occurrence: None)
  Receive Date: 20220927
  Receipt Date: 20220927
  Transmission Date: 20221027
  Serious: Yes (Other)
  Sender: FDA-Public Use
  Company Number: IQ-ROCHE-3158451

PATIENT
  Age: 41 Year
  Sex: Female

DRUGS (1)
  1. TECENTRIQ [Suspect]
     Active Substance: ATEZOLIZUMAB
     Indication: Non-small cell lung cancer
     Dosage: SUBSEQUENT DOSE: 15/MAY/2022, 09/JUN/2022, 05/JUL/2022
     Route: 041
     Dates: start: 20220424, end: 20220728

REACTIONS (1)
  - Disease progression [Not Recovered/Not Resolved]
